FAERS Safety Report 10248798 (Version 1)
Quarter: 2014Q2

REPORT INFORMATION
  Report Type: Report from Study
  Country: US (occurrence: US)
  Receive Date: 20140620
  Receipt Date: 20140620
  Transmission Date: 20141212
  Serious: Yes (Hospitalization, Other)
  Sender: FDA-Public Use
  Company Number: US-ALEXION PHARMACEUTICALS INC.-A201305290

PATIENT
  Sex: 0

DRUGS (1)
  1. SOLIRIS [Suspect]
     Indication: HAEMOLYTIC URAEMIC SYNDROME
     Route: 042

REACTIONS (7)
  - Dialysis [Unknown]
  - Platelet count decreased [Unknown]
  - Herpes zoster [Unknown]
  - Malaise [Unknown]
  - Thrombotic microangiopathy [Unknown]
  - Drug effect decreased [Unknown]
  - Asthenia [Unknown]
